FAERS Safety Report 5057916-5 (Version None)
Quarter: 2006Q3

REPORT INFORMATION
  Report Type: 
  Country: None (occurrence: None)
  Receive Date: 20060721
  Receipt Date: 20060331
  Transmission Date: 20061208
  Serious: No
  Sender: FDA-Public Use
  Company Number: US-GLAXOSMITHKLINE-A0599948A

PATIENT
  Sex: Female

DRUGS (2)
  1. AVANDIA [Suspect]
     Dosage: 2MG TWICE PER DAY
     Route: 048
     Dates: start: 20060328
  2. GLYBURIDE [Concomitant]
     Dosage: 2.5MG TWICE PER DAY

REACTIONS (2)
  - BLOOD GLUCOSE DECREASED [None]
  - TREMOR [None]
